FAERS Safety Report 6747701-8 (Version None)
Quarter: 2010Q2

REPORT INFORMATION
  Report Type: 
  Country: None (occurrence: None)
  Receive Date: 20100528
  Receipt Date: 20100515
  Transmission Date: 20101027
  Serious: Yes (Other)
  Sender: FDA-Public Use
  Company Number: US-JNJFOC-20100506573

PATIENT
  Age: 5 Year
  Sex: Male
  Weight: 22.68 kg

DRUGS (4)
  1. CHILDREN'S TYLENOL SUSPENSION [Suspect]
     Indication: NASOPHARYNGITIS
     Route: 048
  2. CHILDREN'S TYLENOL SUSPENSION [Suspect]
     Indication: COUGH
     Route: 048
  3. CHILDREN'S MOTRIN [Suspect]
     Indication: NASOPHARYNGITIS
  4. CHILDREN'S MOTRIN [Suspect]
     Indication: COUGH

REACTIONS (4)
  - COUGH [None]
  - RESPIRATORY DISORDER [None]
  - TRANSMISSION OF AN INFECTIOUS AGENT VIA A MEDICINAL PRODUCT [None]
  - VOMITING [None]
